FAERS Safety Report 6476833-7 (Version None)
Quarter: 2009Q4

REPORT INFORMATION
  Report Type: 
  Country: None (occurrence: None)
  Receive Date: 20091204
  Receipt Date: 20091204
  Transmission Date: 20100525
  Serious: No
  Sender: FDA-Public Use
  Company Number: None

PATIENT
  Age: 62 Year
  Sex: Female

DRUGS (1)
  1. INTRON A [Suspect]
     Indication: BLISTER
     Dates: end: 20091128

REACTIONS (3)
  - EXPIRED DRUG ADMINISTERED [None]
  - PRODUCT QUALITY ISSUE [None]
  - SKIN LESION [None]
